FAERS Safety Report 5144952-3 (Version None)
Quarter: 2006Q4

REPORT INFORMATION
  Report Type: 
  Country: None (occurrence: None)
  Receive Date: 20061107
  Receipt Date: 20061103
  Transmission Date: 20070319
  Serious: Yes (Other)
  Sender: FDA-Public Use
  Company Number: US-GLAXOSMITHKLINE-A0626138A

PATIENT
  Sex: Female

DRUGS (1)
  1. OASIS MOISTURIZING MOUTH SPRAY [Suspect]
     Indication: DRUG USE FOR UNKNOWN INDICATION
     Route: 048

REACTIONS (3)
  - CHOKING [None]
  - COUGH [None]
  - DRUG ADMINISTRATION ERROR [None]
